FAERS Safety Report 9404155 (Version 1)
Quarter: 2013Q3

REPORT INFORMATION
  Report Type: Spontaneous
  Country: US (occurrence: US)
  Receive Date: 20130717
  Receipt Date: 20130717
  Transmission Date: 20140515
  Serious: Yes (Other)
  Sender: FDA-Public Use
  Company Number: US-SANOFI-AVENTIS-2013SA071441

PATIENT
  Age: 75 Year
  Sex: Male

DRUGS (4)
  1. LANTUS SOLOSTAR [Suspect]
     Dosage: DOSE:10 UNIT(S)
     Route: 058
  2. LANTUS SOLOSTAR [Suspect]
     Dosage: DOSE:20 UNIT(S)
     Route: 058
     Dates: start: 20130305
  3. SOLOSTAR [Suspect]
  4. SOLOSTAR [Suspect]
     Dates: start: 20130305

REACTIONS (1)
  - Eye haemorrhage [Recovered/Resolved]
